FAERS Safety Report 7648022-1 (Version None)
Quarter: 2011Q3

REPORT INFORMATION
  Report Type: 
  Country: None (occurrence: None)
  Receive Date: 20110801
  Receipt Date: 20110727
  Transmission Date: 20111222
  Serious: Yes (Death, Other)
  Sender: FDA-Public Use
  Company Number: CHPA2011US10003

PATIENT
  Age: 61 Year
  Sex: Female

DRUGS (1)
  1. BENEFIBER W/ WHEAT DEXTRIN [Suspect]
     Indication: CONSTIPATION
     Dosage: UNK, UNK
     Route: 048
     Dates: end: 20110501

REACTIONS (4)
  - MYOCARDIAL INFARCTION [None]
  - OFF LABEL USE [None]
  - DIABETES MELLITUS [None]
  - EXPIRED DRUG ADMINISTERED [None]
